FAERS Safety Report 7391144-3 (Version None)
Quarter: 2011Q2

REPORT INFORMATION
  Report Type: 
  Country: None (occurrence: None)
  Receive Date: 20110404
  Receipt Date: 20100416
  Transmission Date: 20111010
  Serious: No
  Sender: FDA-Public Use
  Company Number: US-PFIZER INC-2010049328

PATIENT
  Sex: Female
  Weight: 66 kg

DRUGS (3)
  1. FELDENE [Suspect]
     Indication: ARTHRITIS
  2. ACETYLSALICYLIC ACID [Concomitant]
     Dosage: 81 MG, UNK
  3. FELDENE [Suspect]
     Indication: INTERVERTEBRAL DISC COMPRESSION
     Dosage: 20 MG, UNK
     Route: 048

REACTIONS (1)
  - DECREASED ACTIVITY [None]
